FAERS Safety Report 5156990-5 (Version None)
Quarter: 2006Q4

REPORT INFORMATION
  Report Type: 
  Country: None (occurrence: None)
  Receive Date: 20061127
  Receipt Date: 20061116
  Transmission Date: 20070319
  Serious: Yes (Hospitalization, Other)
  Sender: FDA-Public Use
  Company Number: US-JNJFOC-20061104231

PATIENT
  Sex: Female
  Weight: 47.6 kg

DRUGS (4)
  1. REMICADE [Suspect]
     Indication: CROHN'S DISEASE
     Route: 042
  2. PREDNISONE TAB [Concomitant]
  3. 6-MP [Concomitant]
  4. PREVACID [Concomitant]

REACTIONS (1)
  - HODGKIN'S DISEASE STAGE II [None]
